FAERS Safety Report 16890523 (Version 1)
Quarter: 2019Q4

REPORT INFORMATION
  Report Type: Spontaneous
  Country: DE (occurrence: DE)
  Receive Date: 20191007
  Receipt Date: 20191007
  Transmission Date: 20200122
  Serious: Yes (Other)
  Sender: FDA-Public Use
  Company Number: DE-ABBVIE-19K-062-2900703-00

PATIENT
  Age: 57 Year
  Sex: Female
  Weight: 76 kg

DRUGS (1)
  1. HUMIRA [Suspect]
     Active Substance: ADALIMUMAB
     Indication: BIRDSHOT CHORIORETINOPATHY
     Route: 058
     Dates: start: 2018

REACTIONS (4)
  - Palmoplantar keratoderma [Unknown]
  - Psoriasis [Not Recovered/Not Resolved]
  - Seborrhoea [Unknown]
  - Body tinea [Unknown]

NARRATIVE: CASE EVENT DATE: 201905
